FAERS Safety Report 7425256-2 (Version None)
Quarter: 2011Q2

REPORT INFORMATION
  Report Type: 
  Country: None (occurrence: None)
  Receive Date: 20110420
  Receipt Date: 20110317
  Transmission Date: 20111010
  Serious: Yes (Hospitalization)
  Sender: FDA-Public Use
  Company Number: US-BAYER-2011-025224

PATIENT
  Age: 28 Year
  Sex: Female
  Weight: 62 kg

DRUGS (7)
  1. YAZ [Suspect]
     Indication: PREMENSTRUAL SYNDROME
  2. YAZ [Suspect]
  3. OCELLA [Suspect]
     Indication: PREMENSTRUAL SYNDROME
  4. YASMIN [Suspect]
     Indication: PREMENSTRUAL SYNDROME
     Dosage: UNK
     Dates: start: 20000101, end: 20080101
  5. DILANTIN [Concomitant]
  6. OCELLA [Suspect]
  7. YASMIN [Suspect]

REACTIONS (4)
  - WEIGHT INCREASED [None]
  - GASTRIC DISORDER [None]
  - HEART RATE INCREASED [None]
  - GALLBLADDER OPERATION [None]
